FAERS Safety Report 7222567-0 (Version None)
Quarter: 2011Q1

REPORT INFORMATION
  Report Type: 
  Country: None (occurrence: None)
  Receive Date: 20110112
  Receipt Date: 20110109
  Transmission Date: 20110831
  Serious: Yes (Other)
  Sender: FDA-Public Use
  Company Number: B0692844A

PATIENT
  Sex: Female

DRUGS (1)
  1. NIQUITIN [Suspect]
     Route: 065

REACTIONS (5)
  - AGGRESSION [None]
  - OBSESSIVE THOUGHTS [None]
  - MOOD ALTERED [None]
  - TEARFULNESS [None]
  - COPROLALIA [None]
